FAERS Safety Report 15008843 (Version 1)
Quarter: 2018Q2

REPORT INFORMATION
  Report Type: Spontaneous
  Country: BR (occurrence: BR)
  Receive Date: 20180613
  Receipt Date: 20180613
  Transmission Date: 20180711
  Serious: Yes (Hospitalization, Other)
  Sender: FDA-Public Use
  Company Number: BR-ASTRAZENECA-2018SE42439

PATIENT
  Sex: Female

DRUGS (2)
  1. FASLODEX [Suspect]
     Active Substance: FULVESTRANT
     Dosage: 250MG / 5 ML BOX WITH 2 SYRINGES (1 INJECTION IN EACH BUTTOX)
     Route: 030
     Dates: start: 2018, end: 2018
  2. FASLODEX [Suspect]
     Active Substance: FULVESTRANT
     Dosage: 250 MG, JUST ONE INJECTION
     Route: 030
     Dates: start: 201805, end: 201805

REACTIONS (4)
  - Headache [Not Recovered/Not Resolved]
  - Off label use [Recovered/Resolved]
  - Hepatomegaly [Not Recovered/Not Resolved]
  - Arthralgia [Not Recovered/Not Resolved]

NARRATIVE: CASE EVENT DATE: 2018
